FAERS Safety Report 18270951 (Version 2)
Quarter: 2021Q1

REPORT INFORMATION
  Report Type: Report from Study
  Country: JP (occurrence: JP)
  Receive Date: 20200916
  Receipt Date: 20210129
  Transmission Date: 20210419
  Serious: Yes (Hospitalization, Other)
  Sender: FDA-Public Use
  Company Number: JP-VIIV HEALTHCARE LIMITED-JP2017JPN114804

PATIENT
  Sex: Male

DRUGS (6)
  1. MAINTATE [Concomitant]
     Active Substance: BISOPROLOL FUMARATE
     Indication: MITRAL VALVE INCOMPETENCE
     Dosage: 3.75 MG, QD
     Dates: end: 20190401
  2. FLAGYL [Concomitant]
     Active Substance: METRONIDAZOLE\METRONIDAZOLE HYDROCHLORIDE
     Indication: AMOEBIC DYSENTERY
     Dosage: 750 MG, TID
     Dates: start: 20161228, end: 20170106
  3. LORAZEPAM. [Concomitant]
     Active Substance: LORAZEPAM
     Indication: NEUROSIS
     Dosage: 1 DF, PRN
     Dates: end: 20190401
  4. ABACAVIRSULPHATE+DOLUTEGRAVIR+LAMIVUDINE [Suspect]
     Active Substance: ABACAVIR SULFATE\DOLUTEGRAVIR SODIUM\LAMIVUDINE
     Indication: HIV INFECTION
     Dosage: 1 DF, 1D
     Route: 048
     Dates: start: 20161207
  5. BISOPROLOL FUMARATE TABLET [Concomitant]
     Dosage: UNK
     Dates: start: 20191027, end: 20191104
  6. HANGEKOUBOKUTOU [Concomitant]
     Active Substance: HERBALS
     Indication: NEUROSIS
     Dosage: 1 DF, TID

REACTIONS (5)
  - Herpes zoster [Recovering/Resolving]
  - Helicobacter test positive [Recovered/Resolved]
  - Haemangioma of liver [Recovering/Resolving]
  - Blood uric acid increased [Recovered/Resolved]
  - Anal cancer [Recovering/Resolving]

NARRATIVE: CASE EVENT DATE: 20170111
